FAERS Safety Report 20573329 (Version 2)
Quarter: 2022Q2

REPORT INFORMATION
  Report Type: Report from Study
  Country: US (occurrence: US)
  Receive Date: 20220309
  Receipt Date: 20220426
  Transmission Date: 20220720
  Serious: Yes (Other)
  Sender: FDA-Public Use
  Company Number: US-JNJFOC-20220312602

PATIENT
  Age: 54 Year
  Sex: Male

DRUGS (3)
  1. SPRAVATO [Suspect]
     Active Substance: ESKETAMINE
     Indication: Depression
     Dosage: 56 MG, 1 TOTAL DOSE
     Dates: start: 20220222, end: 20220222
  2. SPRAVATO [Suspect]
     Active Substance: ESKETAMINE
     Dosage: 84MG, 1 TOTAL DOSE
     Dates: start: 20220224, end: 20220224
  3. SPRAVATO [Suspect]
     Active Substance: ESKETAMINE
     Dosage: 84MG, 1 TOTAL DOSE
     Dates: start: 20220301, end: 20220301

REACTIONS (7)
  - Unresponsive to stimuli [Recovered/Resolved]
  - Blood pressure increased [Unknown]
  - Feeling cold [Unknown]
  - Nausea [Recovered/Resolved]
  - Dizziness [Recovered/Resolved]
  - Hyperhidrosis [Recovered/Resolved]
  - Vomiting [Recovered/Resolved]

NARRATIVE: CASE EVENT DATE: 20220301
